FAERS Safety Report 10450576 (Version 2)
Quarter: 2014Q4

REPORT INFORMATION
  Report Type: Spontaneous
  Country: US (occurrence: US)
  Receive Date: 20140912
  Receipt Date: 20141029
  Transmission Date: 20150528
  Serious: Yes (Hospitalization, Other)
  Sender: FDA-Public Use
  Company Number: US-PFIZER INC-2014250787

PATIENT
  Age: 76 Year
  Sex: Female
  Weight: 72.56 kg

DRUGS (6)
  1. LYRICA [Suspect]
     Active Substance: PREGABALIN
     Indication: ABDOMINAL DISCOMFORT
     Dosage: 75 MG, UNK
     Route: 048
  2. PLAQUENIL [Concomitant]
     Active Substance: HYDROXYCHLOROQUINE SULFATE
  3. LYRICA [Suspect]
     Active Substance: PREGABALIN
     Dosage: 175 MG, 3X/DAY
     Route: 048
     Dates: end: 201407
  4. LYRICA [Suspect]
     Active Substance: PREGABALIN
  5. LYRICA [Suspect]
     Active Substance: PREGABALIN
     Indication: BURNING SENSATION
     Dosage: 50 MG, UNK
     Route: 048
     Dates: start: 2010
  6. LYRICA [Suspect]
     Active Substance: PREGABALIN
     Indication: BURNING SENSATION
     Dosage: 300 MG, 3X/DAY
     Route: 048

REACTIONS (6)
  - Back pain [Unknown]
  - Drug ineffective for unapproved indication [Unknown]
  - Pancreatitis [Unknown]
  - Weight increased [Unknown]
  - Gastritis [Unknown]
  - Hypertension [Unknown]

NARRATIVE: CASE EVENT DATE: 201407
